FAERS Safety Report 4406006-0 (Version None)
Quarter: 2004Q3

REPORT INFORMATION
  Report Type: 
  Country: None (occurrence: None)
  Receive Date: 20040723
  Receipt Date: 20040315
  Transmission Date: 20050211
  Serious: No
  Sender: FDA-Public Use
  Company Number: US-GLAXOSMITHKLINE-A0502848A

PATIENT
  Age: 52 Year
  Sex: Male

DRUGS (1)
  1. AVANDIA [Suspect]
     Dosage: 4MG PER DAY
     Route: 048

REACTIONS (5)
  - LYMPHADENOPATHY [None]
  - ODYNOPHAGIA [None]
  - PHARMACEUTICAL PRODUCT COMPLAINT [None]
  - SENSATION OF FOREIGN BODY [None]
  - SWELLING FACE [None]
